FAERS Safety Report 6727498-8 (Version None)
Quarter: 2010Q2

REPORT INFORMATION
  Report Type: 
  Country: None (occurrence: None)
  Receive Date: 20100517
  Receipt Date: 20100506
  Transmission Date: 20101027
  Serious: Yes (Death)
  Sender: FDA-Public Use
  Company Number: US-AMGEN-QUU410822

PATIENT
  Sex: Male

DRUGS (4)
  1. NPLATE [Suspect]
     Indication: THROMBOCYTOPENIA
     Dates: start: 20090511
  2. CORTICOSTEROIDS [Concomitant]
     Dates: start: 20090428
  3. RITUXIMAB [Concomitant]
     Dates: start: 20090228
  4. NEUMEGA [Concomitant]
     Dates: start: 20090420

REACTIONS (2)
  - LYMPHOMA [None]
  - PANCYTOPENIA [None]
